FAERS Safety Report 18279855 (Version 1)
Quarter: 2020Q3

REPORT INFORMATION
  Report Type: Spontaneous
  Country: US (occurrence: US)
  Receive Date: 20200917
  Receipt Date: 20200917
  Transmission Date: 20201103
  Serious: Yes (Hospitalization, Other)
  Sender: FDA-Public Use
  Company Number: NVSC2020US248431

PATIENT
  Sex: Female

DRUGS (2)
  1. MINIVELLE [Suspect]
     Active Substance: ESTRADIOL
     Indication: PRODUCT USED FOR UNKNOWN INDICATION
     Route: 065
  2. ESTRADIOL. [Suspect]
     Active Substance: ESTRADIOL
     Indication: PRODUCT USED FOR UNKNOWN INDICATION
     Dosage: UNK
     Route: 065

REACTIONS (13)
  - Uterine leiomyoma [Unknown]
  - Kyphosis [Unknown]
  - Wheezing [Unknown]
  - Exostosis [Unknown]
  - Ovarian cyst [Unknown]
  - Choking [Unknown]
  - Abdominal pain [Unknown]
  - Aphonia [Unknown]
  - Oesophageal pain [Unknown]
  - Oesophageal obstruction [Unknown]
  - Ligament rupture [Unknown]
  - Product adhesion issue [Unknown]
  - Calcification of muscle [Unknown]
